FAERS Safety Report 22759706 (Version 6)
Quarter: 2024Q1

REPORT INFORMATION
  Report Type: Report from Study
  Country: US (occurrence: US)
  Receive Date: 20230728
  Receipt Date: 20240105
  Transmission Date: 20240410
  Serious: Yes (Hospitalization, Other)
  Sender: FDA-Public Use
  Company Number: US-TAKEDA-2023TUS071807

PATIENT
  Age: 83 Year
  Sex: Male

DRUGS (2)
  1. IXAZOMIB [Suspect]
     Active Substance: IXAZOMIB
     Indication: Plasma cell myeloma
     Dosage: 3 MILLIGRAM
     Route: 048
  2. DARZALEX [Concomitant]
     Active Substance: DARATUMUMAB
     Dosage: UNK
     Route: 065

REACTIONS (7)
  - Cellulitis [Unknown]
  - Mass [Unknown]
  - Urinary tract infection [Unknown]
  - Pyrexia [Unknown]
  - Bacterial sepsis [Unknown]
  - Clostridium difficile infection [Unknown]
  - Platelet count decreased [Unknown]

NARRATIVE: CASE EVENT DATE: 20230615
